FAERS Safety Report 17752384 (Version 1)
Quarter: 2020Q2

REPORT INFORMATION
  Report Type: Spontaneous
  Country: GB (occurrence: GB)
  Receive Date: 20200506
  Receipt Date: 20200506
  Transmission Date: 20200714
  Serious: Yes (Other)
  Sender: FDA-Public Use
  Company Number: NVSC2020GB122247

PATIENT
  Age: 24 Year
  Sex: Male

DRUGS (6)
  1. METHOTREXATE. [Suspect]
     Active Substance: METHOTREXATE
     Indication: GERM CELL NEOPLASM
     Dosage: 8 G/M2 (CYCLE1 OF 15 DAYS)
     Route: 065
  2. ETOPOSIDE. [Suspect]
     Active Substance: ETOPOSIDE
     Indication: GERM CELL NEOPLASM
     Dosage: 90 MG/M2 (CYCLE1 OF 15 DAYS)
     Route: 065
  3. CALCIUM FOLINATE [Suspect]
     Active Substance: LEUCOVORIN CALCIUM
     Indication: GERM CELL NEOPLASM
     Dosage: UNK
     Route: 065
  4. FILGRASTIM [Suspect]
     Active Substance: FILGRASTIM
     Indication: GERM CELL NEOPLASM
     Dosage: UNK (300 MCG/DAY CYCLE1 OF 15 DAYS)
     Route: 065
  5. CISPLATIN. [Suspect]
     Active Substance: CISPLATIN
     Indication: GERM CELL NEOPLASM
     Dosage: 50 MG/M2 (CYCLE1 OF 15 DAYS)
     Route: 065
  6. ACTINOMYCIN D [Suspect]
     Active Substance: DACTINOMYCIN
     Indication: GERM CELL NEOPLASM
     Dosage: 1 MG/M2 (CYCLE1 OF 15 DAYS)
     Route: 065

REACTIONS (2)
  - Product use in unapproved indication [Unknown]
  - Myelodysplastic syndrome [Unknown]
